FAERS Safety Report 6157218-X (Version None)
Quarter: 2009Q2

REPORT INFORMATION
  Report Type: 
  Country: None (occurrence: None)
  Receive Date: 20090416
  Receipt Date: 20090408
  Transmission Date: 20091009
  Serious: Yes (Hospitalization)
  Sender: FDA-Public Use
  Company Number: FR-MERCK-0904USA01503

PATIENT
  Age: 82 Year
  Sex: Female

DRUGS (6)
  1. MODURETIC 5-50 [Suspect]
     Indication: HYPERTENSION
     Route: 048
     Dates: end: 20090216
  2. TAREG [Suspect]
     Indication: HYPERTENSION
     Route: 048
  3. CALSYN [Concomitant]
     Route: 065
  4. LOPERAMIDE [Concomitant]
     Route: 065
  5. TENSTATEN [Suspect]
     Indication: HYPERTENSION
     Route: 048
     Dates: end: 20090216
  6. ZALDIAR [Suspect]
     Indication: PAIN
     Route: 048
     Dates: end: 20090216

REACTIONS (1)
  - FALL [None]
